FAERS Safety Report 13494533 (Version 1)
Quarter: 2017Q2

REPORT INFORMATION
  Report Type: Spontaneous
  Country: GB (occurrence: GB)
  Receive Date: 20170428
  Receipt Date: 20170428
  Transmission Date: 20170830
  Serious: Yes (Other)
  Sender: FDA-Public Use
  Company Number: GB-ACCORD-050724

PATIENT
  Age: 57 Year
  Sex: Female
  Weight: 58 kg

DRUGS (8)
  1. TRAMADOL/TRAMADOL HYDROCHLORIDE [Suspect]
     Active Substance: TRAMADOL HYDROCHLORIDE
     Indication: PRODUCT USED FOR UNKNOWN INDICATION
     Dates: start: 20170406
  2. ATENOLOL/ATENOLOL HYDROCHLORIDE [Concomitant]
     Active Substance: ATENOLOL HYDROCHLORIDE
     Dosage: EACH MORNING.
     Dates: start: 20160726
  3. ATORVASTATIN [Concomitant]
     Active Substance: ATORVASTATIN
     Dosage: AT NIGHT.
     Dates: start: 20160923
  4. LISINOPRIL. [Concomitant]
     Active Substance: LISINOPRIL
     Dates: start: 20160726
  5. DIHYDROCODEINE BITARTRATE/PARACETAMOL [Concomitant]
     Dosage: TAKE 1 OR 2 FOUR TIMES A DAY.
     Dates: start: 20170406
  6. FLUCLOXACILLIN [Concomitant]
     Active Substance: FLUCLOXACILLIN
     Dates: start: 20170406
  7. IBUPROFEN. [Concomitant]
     Active Substance: IBUPROFEN
     Dosage: APPLY.
     Dates: start: 20170322, end: 20170401
  8. NIFEDIPINE. [Concomitant]
     Active Substance: NIFEDIPINE
     Dates: start: 20170329

REACTIONS (1)
  - Drug intolerance [Unknown]

NARRATIVE: CASE EVENT DATE: 20170406
